FAERS Safety Report 8301283-8 (Version None)
Quarter: 2012Q2

REPORT INFORMATION
  Report Type: 
  Country: None (occurrence: None)
  Receive Date: 20120420
  Receipt Date: 20120419
  Transmission Date: 20120825
  Serious: Yes (Death)
  Sender: FDA-Public Use
  Company Number: IT-BAYER-2012-037796

PATIENT
  Age: 80 Year
  Sex: Female

DRUGS (3)
  1. ASPIRIN [Suspect]
     Indication: PROPHYLAXIS
     Dosage: 100 MG, QD
     Route: 048
     Dates: start: 20100101, end: 20120305
  2. RISPERDAL [Concomitant]
     Dosage: DAILY DOSE 1 MG
     Route: 048
  3. SELEPARINA [Suspect]
     Indication: THROMBOPHLEBITIS
     Dosage: DAILY DOSE 3800 IU
     Route: 058
     Dates: start: 20120305, end: 20120309

REACTIONS (3)
  - SHOCK HAEMORRHAGIC [None]
  - BRADYCARDIA [None]
  - DUODENAL ULCER PERFORATION [None]
